FAERS Safety Report 17143774 (Version 2)
Quarter: 2019Q4

REPORT INFORMATION
  Report Type: Spontaneous
  Country: ES (occurrence: ES)
  Receive Date: 20191212
  Receipt Date: 20191213
  Transmission Date: 20200122
  Serious: Yes (Hospitalization)
  Sender: FDA-Public Use
  Company Number: ES-JNJFOC-20191210818

PATIENT
  Age: 66 Year
  Sex: Male

DRUGS (1)
  1. STELARA [Suspect]
     Active Substance: USTEKINUMAB
     Indication: PSORIATIC ARTHROPATHY
     Route: 058
     Dates: start: 20170717, end: 20190717

REACTIONS (2)
  - Staphylococcal bacteraemia [Recovered/Resolved]
  - Pulmonary nocardiosis [Recovering/Resolving]

NARRATIVE: CASE EVENT DATE: 20190717
